FAERS Safety Report 22644981 (Version 1)
Quarter: 2023Q2

REPORT INFORMATION
  Report Type: Spontaneous
  Country: US (occurrence: None)
  Receive Date: 20230625
  Receipt Date: 20230625
  Transmission Date: 20230722
  Serious: Yes (Other)
  Sender: FDA-Public Use
  Company Number: None

PATIENT
  Age: 73 Year
  Sex: Female
  Weight: 67.5 kg

DRUGS (12)
  1. OFLOXACIN OPHTH SOLN [Suspect]
     Active Substance: OFLOXACIN
     Indication: Eye operation
     Dosage: OTHER QUANTITY : 5 DROP(S);?FREQUENCY : 3 TIMES A DAY;?
     Route: 047
     Dates: start: 20230131, end: 20230215
  2. LOSARTAN [Concomitant]
     Active Substance: LOSARTAN
  3. MYRBETRIQ [Concomitant]
     Active Substance: MIRABEGRON
  4. AMLODIPINE [Concomitant]
     Active Substance: AMLODIPINE BESYLATE
  5. ATORVASTATIN CALCIUM [Concomitant]
     Active Substance: ATORVASTATIN CALCIUM
  6. LINZESS [Concomitant]
     Active Substance: LINACLOTIDE
  7. POTASSIUM [Concomitant]
     Active Substance: POTASSIUM
  8. MAGNESIUM [Concomitant]
     Active Substance: MAGNESIUM
  9. ViaCtiv Calcuim [Concomitant]
  10. VITAMIN D [Concomitant]
     Active Substance: VITAMIN D NOS
  11. ASPIRIN [Concomitant]
     Active Substance: ASPIRIN
  12. Centruim Multi vitamin with omega 3 [Concomitant]

REACTIONS (5)
  - Eye irritation [None]
  - Eye pain [None]
  - Photosensitivity reaction [None]
  - Lacrimation increased [None]
  - Eye pain [None]

NARRATIVE: CASE EVENT DATE: 20230131
